FAERS Safety Report 24408239 (Version 3)
Quarter: 2024Q4

REPORT INFORMATION
  Report Type: Report from Study
  Country: US (occurrence: US)
  Receive Date: 20241007
  Receipt Date: 20241120
  Transmission Date: 20250115
  Serious: No
  Sender: LUNDBECK
  Company Number: US-LUNDBECK-DKLU4004191

PATIENT

DRUGS (6)
  1. VYEPTI [Suspect]
     Active Substance: EPTINEZUMAB-JJMR
     Indication: Migraine
     Dosage: 100 MILLIGRAM
     Route: 041
     Dates: start: 20240819
  2. VYEPTI [Suspect]
     Active Substance: EPTINEZUMAB-JJMR
     Dosage: 300 MILLIGRAM
     Route: 041
  3. BOTOX [Concomitant]
     Active Substance: ONABOTULINUMTOXINA
     Indication: Product used for unknown indication
  4. GABAPENTIN [Concomitant]
     Active Substance: GABAPENTIN
     Indication: Product used for unknown indication
  5. RIZATRIPTAN [Concomitant]
     Active Substance: RIZATRIPTAN
     Indication: Product used for unknown indication
  6. SERTRALINE [Concomitant]
     Active Substance: SERTRALINE HYDROCHLORIDE
     Indication: Product used for unknown indication

REACTIONS (2)
  - Aura [Unknown]
  - Therapeutic response delayed [Unknown]
